FAERS Safety Report 21714157 (Version 2)
Quarter: 2022Q4

REPORT INFORMATION
  Report Type: Spontaneous
  Country: US (occurrence: US)
  Receive Date: 20221212
  Receipt Date: 20221214
  Transmission Date: 20230113
  Serious: No
  Sender: FDA-Public Use
  Company Number: US-ORGANON-O2212USA000532

PATIENT
  Sex: Female
  Weight: 76 kg

DRUGS (1)
  1. NEXPLANON [Suspect]
     Active Substance: ETONOGESTREL
     Indication: Contraception
     Dosage: 1 DOSAGE FORM (DOSE/FREQUENCY REPORTED 68 MILLIGRAM (MG) ONCE)
     Route: 059
     Dates: start: 20210921, end: 20220906

REACTIONS (2)
  - Pregnancy test false positive [Unknown]
  - Vaginal haemorrhage [Recovered/Resolved]

NARRATIVE: CASE EVENT DATE: 20220101
